FAERS Safety Report 7675654-7 (Version None)
Quarter: 2011Q3

REPORT INFORMATION
  Report Type: 
  Country: None (occurrence: None)
  Receive Date: 20110810
  Receipt Date: 20110729
  Transmission Date: 20111222
  Serious: Yes (Other)
  Sender: FDA-Public Use
  Company Number: US-ELI_LILLY_AND_COMPANY-US201108002527

PATIENT
  Sex: Female

DRUGS (1)
  1. HUMATROPE [Suspect]
     Indication: FATIGUE
     Dosage: 6 MG, 0.3 QD
     Route: 065
     Dates: start: 20081101

REACTIONS (3)
  - BREAST CANCER [None]
  - VISUAL ACUITY REDUCED [None]
  - OFF LABEL USE [None]
